FAERS Safety Report 6036850-8 (Version None)
Quarter: 2009Q1

REPORT INFORMATION
  Report Type: 
  Country: None (occurrence: None)
  Receive Date: 20090114
  Receipt Date: 20090107
  Transmission Date: 20090719
  Serious: Yes (Other)
  Sender: FDA-Public Use
  Company Number: PHEH2009US00556

PATIENT
  Sex: Female

DRUGS (4)
  1. AREDIA [Suspect]
     Indication: BREAST CANCER
     Dosage: 90 MG, QMO
     Route: 042
     Dates: start: 19990101, end: 20040101
  2. ZOMETA [Suspect]
     Indication: BREAST CANCER
     Dosage: 40 MG, QMO
     Route: 042
     Dates: start: 20040101, end: 20050101
  3. HERCEPTIN [Concomitant]
  4. NAVELBINE [Concomitant]

REACTIONS (1)
  - BONE DISORDER [None]
